FAERS Safety Report 18665884 (Version 2)
Quarter: 2020Q4

REPORT INFORMATION
  Report Type: Spontaneous
  Country: US (occurrence: US)
  Receive Date: 20201226
  Receipt Date: 20201228
  Transmission Date: 20210114
  Serious: Yes (Death, Life-Threatening, Hospitalization, Other)
  Sender: FDA-Public Use
  Company Number: US-ACCORD-211774

PATIENT
  Age: 65 Year
  Sex: Male

DRUGS (3)
  1. MYCOPHENOLIC ACID. [Suspect]
     Active Substance: MYCOPHENOLIC ACID
     Indication: IMMUNOSUPPRESSION
     Dosage: 250 MG TWICE?DAILY
  2. PREDNISONE. [Suspect]
     Active Substance: PREDNISONE
     Indication: IMMUNOSUPPRESSION
     Dosage: 5 MG DAILY
  3. TACROLIMUS. [Suspect]
     Active Substance: TACROLIMUS
     Indication: IMMUNOSUPPRESSION
     Dosage: 2 MG TWICE DAILY

REACTIONS (13)
  - General physical health deterioration [Unknown]
  - Hypoglycaemia [Unknown]
  - Mental status changes [Unknown]
  - Tenosynovitis [Unknown]
  - Brain abscess [Fatal]
  - Mycobacterium haemophilum infection [Fatal]
  - Renal failure [Unknown]
  - Escherichia sepsis [Unknown]
  - Osteomyelitis [Fatal]
  - Acarodermatitis [Unknown]
  - Clostridium difficile colitis [Unknown]
  - Condition aggravated [Unknown]
  - Septic shock [Fatal]
